FAERS Safety Report 7795177-4 (Version None)
Quarter: 2011Q3

REPORT INFORMATION
  Report Type: 
  Country: None (occurrence: None)
  Receive Date: 20110930
  Receipt Date: 20110915
  Transmission Date: 20111222
  Serious: Yes (Life-Threatening, Hospitalization, Other)
  Sender: FDA-Public Use
  Company Number: 2011MA011375

PATIENT
  Age: 71 Year
  Sex: Female
  Weight: 40 kg

DRUGS (9)
  1. PROPOFOL [Suspect]
     Indication: ANAESTHESIA
     Dosage: 60 MG
  2. LIDOCAINE [Suspect]
     Indication: ANAESTHESIA
     Dosage: 10 ML 1%; ED
     Route: 008
  3. POVIDONE IODINE (NO PREF. NAME) [Suspect]
     Indication: INFECTION PROPHYLAXIS
  4. DIAZEPAM [Suspect]
     Indication: ANAESTHESIA
     Dosage: 4 MG
  5. VECURONIUM BROMIDE [Suspect]
     Indication: ANAESTHESIA
     Dosage: 2 MG
  6. KETAMINE HCL [Suspect]
     Indication: ANAESTHESIA
     Dosage: 20 MG
  7. FENTANYL [Suspect]
     Indication: ANAESTHESIA
     Dosage: 100 MCG
  8. ROXATIDINE ACETATE HCL [Suspect]
     Indication: ANAESTHESIA
     Dosage: 75 MG
  9. SUXAMETHONIUM (SUXAMETHONIUM) [Suspect]
     Indication: ANAESTHESIA
     Dosage: 40 MG

REACTIONS (7)
  - CIRCULATORY COLLAPSE [None]
  - PULSELESS ELECTRICAL ACTIVITY [None]
  - ANAPHYLACTOID REACTION [None]
  - IODINE ALLERGY [None]
  - CARDIAC ARREST [None]
  - DRUG INEFFECTIVE [None]
  - VENTRICULAR FIBRILLATION [None]
